FAERS Safety Report 24143235 (Version 2)
Quarter: 2024Q3

REPORT INFORMATION
  Report Type: Spontaneous
  Country: DE (occurrence: DE)
  Receive Date: 20240726
  Receipt Date: 20240925
  Transmission Date: 20241017
  Serious: Yes (Other)
  Sender: pharmaAND
  Company Number: DE-ROCHE-RCA5208457

PATIENT
  Age: 52 Year
  Sex: Female

DRUGS (6)
  1. PEGASYS [Suspect]
     Active Substance: PEGINTERFERON ALFA-2A
     Indication: Hepatitis E
     Dosage: 90 ?G, 1X/WEEK
     Route: 065
     Dates: start: 201907, end: 201911
  2. PEGASYS [Suspect]
     Active Substance: PEGINTERFERON ALFA-2A
     Indication: Chronic hepatitis
     Dosage: 180 ?G, 1X/WEEK
     Route: 065
     Dates: start: 201905, end: 201911
  3. COPEGUS [Suspect]
     Active Substance: RIBAVIRIN
     Indication: Hepatitis E
     Dosage: 1ST CYCLE
     Route: 065
     Dates: start: 201710, end: 201802
  4. COPEGUS [Suspect]
     Active Substance: RIBAVIRIN
     Indication: Chronic hepatitis
     Dosage: 2ND CYCLE
     Route: 065
     Dates: start: 201804, end: 201901
  5. COPEGUS [Suspect]
     Active Substance: RIBAVIRIN
     Dosage: 3RD CYCLE
     Route: 065
     Dates: start: 201905, end: 201911
  6. COPEGUS [Suspect]
     Active Substance: RIBAVIRIN
     Dosage: 3RD CYCLE
     Route: 065
     Dates: start: 201907, end: 201911

REACTIONS (4)
  - Haematotoxicity [Unknown]
  - Off label use [Recovered/Resolved]
  - Hepatitis E [Recovered/Resolved]
  - Chronic hepatitis [Recovered/Resolved]
